FAERS Safety Report 5204431-1 (Version None)
Quarter: 2007Q1

REPORT INFORMATION
  Report Type: 
  Country: None (occurrence: None)
  Receive Date: 20070110
  Receipt Date: 20060323
  Transmission Date: 20070707
  Serious: No
  Sender: FDA-Public Use
  Company Number: US-BRISTOL-MYERS SQUIBB COMPANY-13325220

PATIENT
  Sex: Female

DRUGS (2)
  1. ABILIFY [Suspect]
     Dosage: REDUCED TO 7.5 MG DAILY
     Dates: start: 20060301
  2. STRATTERA [Concomitant]

REACTIONS (3)
  - DYSPHASIA [None]
  - NERVOUSNESS [None]
  - RESTLESS LEGS SYNDROME [None]
